FAERS Safety Report 8237302-7 (Version None)
Quarter: 2012Q1

REPORT INFORMATION
  Report Type: 
  Country: None (occurrence: None)
  Receive Date: 20120327
  Receipt Date: 20120322
  Transmission Date: 20120608
  Serious: Yes (Hospitalization, Congenital Anomaly, Other)
  Sender: FDA-Public Use
  Company Number: US-PFIZER INC-2012044625

PATIENT
  Sex: Female
  Weight: 3 kg

DRUGS (16)
  1. AEROBID [Concomitant]
     Dosage: TWO PUFFS TWICE A DAY
     Route: 064
  2. MULTI-VITAMINS [Concomitant]
     Dosage: UNK
     Route: 064
     Dates: start: 20071120
  3. PROMETHAZINE [Concomitant]
     Indication: NAUSEA
     Dosage: UNK MG, 4X/DAY
     Route: 064
  4. ZOFRAN [Concomitant]
     Indication: NAUSEA
     Dosage: 4 MG, 4X/DAY
     Route: 064
  5. MAGNESIUM HYDROXIDE TAB [Concomitant]
     Dosage: 10 ML, UNK
     Route: 064
     Dates: start: 20071216
  6. FOLIC ACID [Concomitant]
     Dosage: UNK
     Route: 064
     Dates: start: 20070301
  7. TORADOL [Concomitant]
     Dosage: 30 MG, UNK
     Route: 064
     Dates: start: 20080624
  8. ZOFRAN [Concomitant]
     Indication: VOMITING
  9. CETIRIZINE HCL [Concomitant]
     Dosage: UNK
     Route: 064
  10. PROMETHAZINE [Concomitant]
     Indication: VOMITING
  11. ZOLOFT [Suspect]
     Indication: ANXIETY
     Dosage: 12.5 MG, 1X/DAY
     Route: 064
     Dates: start: 20070911, end: 20071016
  12. ZOLOFT [Suspect]
     Dosage: 12.5 MG, 1X/DAY
     Route: 064
     Dates: start: 20080415
  13. ZANTAC [Concomitant]
     Indication: GASTROOESOPHAGEAL REFLUX DISEASE
     Dosage: 150 MG, 2X/DAY
     Route: 064
     Dates: start: 20071216
  14. NEXIUM [Concomitant]
     Dosage: 40 MG, UNK
     Route: 064
     Dates: start: 20071216
  15. REGLAN [Concomitant]
     Dosage: 10 MG, 2X/DAY (BEFORE MEALS AND AT BED TIME)
     Route: 064
     Dates: start: 20071216
  16. MACROBID [Concomitant]
     Dosage: UNK
     Route: 064

REACTIONS (7)
  - PATENT DUCTUS ARTERIOSUS [None]
  - CONGENITAL TRICUSPID VALVE INCOMPETENCE [None]
  - ATRIAL SEPTAL DEFECT [None]
  - TACHYCARDIA FOETAL [None]
  - MATERNAL EXPOSURE TIMING UNSPECIFIED [None]
  - JAUNDICE NEONATAL [None]
  - VENTRICULAR SEPTAL DEFECT [None]
